FAERS Safety Report 10367794 (Version 1)
Quarter: 2014Q3

REPORT INFORMATION
  Report Type: Spontaneous
  Country: US (occurrence: None)
  Receive Date: 20140806
  Receipt Date: 20140806
  Transmission Date: 20150326
  Serious: No
  Sender: FDA-Public Use
  Company Number: None

PATIENT
  Age: 56 Year
  Sex: Female
  Weight: 54.43 kg

DRUGS (1)
  1. CABERGOLINE. [Suspect]
     Active Substance: CABERGOLINE
     Indication: PITUITARY TUMOUR BENIGN
     Dosage: ONE TABLE, ONCE PER WEEK, TAKEN BY MOUTH
     Route: 048
     Dates: start: 20140529, end: 20140805

REACTIONS (1)
  - Alopecia [None]

NARRATIVE: CASE EVENT DATE: 20140618
